FAERS Safety Report 13615866 (Version 3)
Quarter: 2017Q2

REPORT INFORMATION
  Report Type: Report from Study
  Country: FR (occurrence: FR)
  Receive Date: 20170606
  Receipt Date: 20170627
  Transmission Date: 20170830
  Serious: Yes (Death)
  Sender: FDA-Public Use
  Company Number: FR-PFIZER INC-2017243030

PATIENT
  Age: 67 Year
  Sex: Female
  Weight: 62 kg

DRUGS (2)
  1. SUTENT [Suspect]
     Active Substance: SUNITINIB MALATE
     Indication: RENAL CANCER METASTATIC
     Dosage: 50 MG, UNK
     Route: 048
     Dates: start: 20160613, end: 20161010
  2. AXITINIB [Suspect]
     Active Substance: AXITINIB
     Dosage: 5 MG, UNK
     Route: 048
     Dates: start: 20161014

REACTIONS (1)
  - Neoplasm progression [Fatal]

NARRATIVE: CASE EVENT DATE: 20170223
